FAERS Safety Report 12246319 (Version 1)
Quarter: 2016Q2

REPORT INFORMATION
  Report Type: Spontaneous
  Country: US (occurrence: US)
  Receive Date: 20160407
  Receipt Date: 20160407
  Transmission Date: 20160815
  Serious: No
  Sender: FDA-Public Use
  Company Number: US-ENDO PHARMACEUTICALS INC.-2015-002938

PATIENT
  Sex: Male
  Weight: 50.85 kg

DRUGS (6)
  1. NOVOLOG [Concomitant]
     Active Substance: INSULIN ASPART
     Indication: TYPE 1 DIABETES MELLITUS
  2. LANTUS [Concomitant]
     Active Substance: INSULIN GLARGINE
     Indication: PRODUCT USED FOR UNKNOWN INDICATION
  3. CLONIDINE HYDROCHLORIDE TABLETS 0.1 MG [Suspect]
     Active Substance: CLONIDINE HYDROCHLORIDE
     Route: 048
     Dates: start: 201209, end: 201303
  4. CLONIDINE HYDROCHLORIDE TABLETS 0.1 MG [Suspect]
     Active Substance: CLONIDINE HYDROCHLORIDE
     Indication: DISTURBANCE IN ATTENTION
     Route: 048
     Dates: start: 201202, end: 20120531
  5. CLONIDINE HYDROCHLORIDE TABLETS 0.3 MG [Suspect]
     Active Substance: CLONIDINE HYDROCHLORIDE
     Indication: DISTURBANCE IN ATTENTION
     Route: 048
     Dates: start: 201309
  6. CLONIDINE HYDROCHLORIDE TABLETS 0.2 MG [Suspect]
     Active Substance: CLONIDINE HYDROCHLORIDE
     Indication: DISTURBANCE IN ATTENTION
     Route: 048
     Dates: start: 201303, end: 201309

REACTIONS (4)
  - Abdominal discomfort [Recovered/Resolved]
  - Headache [Recovered/Resolved]
  - Fatigue [Unknown]
  - Off label use [Not Recovered/Not Resolved]

NARRATIVE: CASE EVENT DATE: 2012
